FAERS Safety Report 5028762-3 (Version None)
Quarter: 2006Q2

REPORT INFORMATION
  Report Type: 
  Country: None (occurrence: None)
  Receive Date: 20060501
  Receipt Date: 20060130
  Transmission Date: 20061013
  Serious: Yes (Other)
  Sender: FDA-Public Use
  Company Number: 200611224US

PATIENT
  Age: 58 Year
  Sex: Female
  Weight: 86.81 kg

DRUGS (6)
  1. KETEK [Suspect]
     Indication: BRONCHITIS
     Dosage: ONCE
     Dates: start: 20060126, end: 20060126
  2. KETEK [Suspect]
     Indication: SINUS DISORDER
     Dosage: ONCE
     Dates: start: 20060126, end: 20060126
  3. ESTROGEN NOS [Concomitant]
  4. NIFEDIPINE [Concomitant]
  5. SYNTHROID [Concomitant]
  6. CELEBREX [Concomitant]

REACTIONS (7)
  - ALANINE AMINOTRANSFERASE INCREASED [None]
  - ASPARTATE AMINOTRANSFERASE INCREASED [None]
  - BLOOD ALKALINE PHOSPHATASE INCREASED [None]
  - BLOOD BILIRUBIN INCREASED [None]
  - FEELING ABNORMAL [None]
  - JAUNDICE [None]
  - LIVER FUNCTION TEST ABNORMAL [None]
